FAERS Safety Report 5081137-3 (Version None)
Quarter: 2006Q3

REPORT INFORMATION
  Report Type: 
  Country: None (occurrence: None)
  Receive Date: 20060810
  Receipt Date: 20060726
  Transmission Date: 20061208
  Serious: Yes (Other)
  Sender: FDA-Public Use
  Company Number: 008140

PATIENT
  Age: 35 Year
  Sex: Female

DRUGS (2)
  1. NORETHINDRONE ACETATE [Suspect]
     Indication: ENDOMETRIOSIS
     Dosage: 1 TABLET, QD, ORAL
     Route: 048
     Dates: start: 20060609, end: 20060724
  2. LUPRON [Suspect]
     Indication: ENDOMETRIOSIS
     Dosage: 1 UNK , SINGLE, INTRAMUSCULAR
     Route: 030
     Dates: start: 20060609, end: 20060609

REACTIONS (4)
  - HEART RATE INCREASED [None]
  - IRRITABILITY [None]
  - SELF-INJURIOUS IDEATION [None]
  - THINKING ABNORMAL [None]
